FAERS Safety Report 9711003 (Version 2)
Quarter: 2013Q4

REPORT INFORMATION
  Report Type: Spontaneous
  Country: US (occurrence: US)
  Receive Date: 20131126
  Receipt Date: 20131126
  Transmission Date: 20140711
  Serious: No
  Sender: FDA-Public Use
  Company Number: US-BRISTOL-MYERS SQUIBB COMPANY-19127877

PATIENT
  Age: 66 Year
  Sex: Female
  Weight: 112.47 kg

DRUGS (7)
  1. BYETTA [Suspect]
     Indication: INSULIN RESISTANCE
     Dosage: ONCE DAILY IN THE MORNING
     Route: 058
     Dates: start: 20130722
  2. LIVALO [Concomitant]
  3. LEVOTHYROXINE [Concomitant]
  4. OXYBUTYNIN [Concomitant]
  5. OMEPRAZOLE [Concomitant]
  6. MACROBID [Concomitant]
     Indication: URINARY TRACT INFECTION
  7. LASIX [Concomitant]

REACTIONS (5)
  - Injection site erythema [Unknown]
  - Injection site pruritus [Unknown]
  - Urinary tract infection [Unknown]
  - Off label use [Unknown]
  - Insulin resistance [Unknown]
